FAERS Safety Report 9336389 (Version 3)
Quarter: 2013Q2

REPORT INFORMATION
  Report Type: Report from Study
  Country: DE (occurrence: DE)
  Receive Date: 20130607
  Receipt Date: 20130621
  Transmission Date: 20140414
  Serious: Yes (Hospitalization)
  Sender: FDA-Public Use
  Company Number: DE-BAYER-2013-066122

PATIENT
  Sex: Male

DRUGS (14)
  1. SORAFENIB (RAF KINASE INHIBITOR) [Suspect]
     Indication: METASTATIC RENAL CELL CARCINOMA
     Dosage: 400 MG, DAILY DOSE
     Dates: start: 20130424, end: 20130526
  2. XARELTO [Concomitant]
     Indication: HYPERTENSION
     Dosage: 15 MG, QD
     Route: 048
     Dates: start: 20121221
  3. BISOPROLOL [Concomitant]
     Indication: HYPERTENSION
     Dosage: QD
     Route: 048
     Dates: start: 20121221
  4. MIRTAZAPIN [Concomitant]
     Indication: SPINAL PAIN
     Dosage: 15 MG, QD
     Route: 048
     Dates: start: 20130409
  5. PALLADON [Concomitant]
     Indication: SPINAL PAIN
     Dosage: 4 MG, BID
     Route: 048
     Dates: start: 20130409
  6. PALLADON [Concomitant]
     Indication: SPINAL PAIN
     Dosage: 1.3 MG
     Dates: start: 20130409
  7. MCP [Concomitant]
     Indication: PROPHYLAXIS OF NAUSEA AND VOMITING
     Dosage: 30 TRPF.
     Route: 048
     Dates: start: 20130409
  8. MOVICOL [Concomitant]
     Indication: CONSTIPATION
     Dosage: UNK
     Route: 048
     Dates: start: 20130409
  9. OMEPRAZOL [Concomitant]
     Indication: HYPERTENSION
     Dosage: 40 MG, QD
     Route: 048
     Dates: start: 20121212
  10. DEXAMETHASON [Concomitant]
     Indication: HEPATIC PAIN
     Dosage: 16 MG, QD
     Route: 048
     Dates: start: 20130409, end: 20130413
  11. DEXAMETHASON [Concomitant]
     Indication: HEPATIC PAIN
     Dosage: 8 MG, QD
     Dates: start: 20130414, end: 20130420
  12. DEXAMETHASON [Concomitant]
     Indication: HEPATIC PAIN
     Dosage: 4 MG, QD
     Route: 048
     Dates: start: 20130421, end: 20130427
  13. AUGMENTAN [Concomitant]
     Indication: PYREXIA
     Dosage: 25 MG, BID
     Route: 048
     Dates: start: 20130503, end: 20130508
  14. TAMSULOSIN [Concomitant]
     Indication: PROPHYLAXIS
     Dosage: 4 MG, QD
     Route: 048
     Dates: start: 20130526

REACTIONS (2)
  - Faecaloma [Recovered/Resolved]
  - Urinary retention [Recovered/Resolved]
